FAERS Safety Report 8186818-0 (Version None)
Quarter: 2012Q1

REPORT INFORMATION
  Report Type: 
  Country: None (occurrence: None)
  Receive Date: 20120301
  Receipt Date: 20120220
  Transmission Date: 20120608
  Serious: Yes (Death, Hospitalization, Other)
  Sender: FDA-Public Use
  Company Number: 2012SP009492

PATIENT
  Sex: Female

DRUGS (1)
  1. MIRALAX [Suspect]
     Indication: PRODUCT USED FOR UNKNOWN INDICATION
     Dosage: ;;PO
     Route: 048
     Dates: end: 20111201

REACTIONS (4)
  - INTESTINAL PERFORATION [None]
  - SEPSIS [None]
  - NO THERAPEUTIC RESPONSE [None]
  - FAECALOMA [None]
